FAERS Safety Report 6517869-7 (Version None)
Quarter: 2009Q4

REPORT INFORMATION
  Report Type: 
  Country: None (occurrence: None)
  Receive Date: 20091223
  Receipt Date: 20091223
  Transmission Date: 20100525
  Serious: Yes (Hospitalization)
  Sender: FDA-Public Use
  Company Number: None

PATIENT
  Sex: Male
  Weight: 103.8737 kg

DRUGS (2)
  1. CETUXIMAB 250 MG/M2 [Suspect]
     Indication: TRANSITIONAL CELL CARCINOMA
     Dosage: 325 MG IV
  2. PACLITAXEL 70 MG/M2 -DOSE REDUCED FROM 80 MG 10/19/09 [Suspect]
     Indication: TRANSITIONAL CELL CARCINOMA
     Dosage: 147 MG IV
     Route: 042

REACTIONS (3)
  - NAUSEA [None]
  - URINARY TRACT INFECTION [None]
  - VOMITING [None]
